FAERS Safety Report 6404314-5 (Version None)
Quarter: 2009Q4

REPORT INFORMATION
  Report Type: 
  Country: None (occurrence: None)
  Receive Date: 20091016
  Receipt Date: 20091014
  Transmission Date: 20100525
  Serious: Yes (Life-Threatening, Hospitalization)
  Sender: FDA-Public Use
  Company Number: D0062745A

PATIENT
  Sex: Female

DRUGS (4)
  1. HYCAMTIN [Suspect]
     Indication: ADENOCARCINOMA
     Route: 065
     Dates: start: 20090501, end: 20090801
  2. EMEND [Concomitant]
     Route: 065
  3. NULYTELY [Concomitant]
     Route: 065
  4. UBRETID [Concomitant]
     Route: 065

REACTIONS (5)
  - ADENOCARCINOMA [None]
  - GENERAL PHYSICAL HEALTH DETERIORATION [None]
  - LAPAROTOMY [None]
  - SUBILEUS [None]
  - VOMITING [None]
